FAERS Safety Report 21197295 (Version 25)
Quarter: 2025Q3

REPORT INFORMATION
  Report Type: Spontaneous
  Country: US (occurrence: US)
  Receive Date: 20220810
  Receipt Date: 20250711
  Transmission Date: 20251021
  Serious: Yes (Hospitalization, Other)
  Sender: SANOFI AVENTIS
  Company Number: US-SA-SAC20220805000688

PATIENT
  Age: 29 Year
  Sex: Female
  Weight: 134.71 kg

DRUGS (15)
  1. DUPIXENT [Suspect]
     Active Substance: DUPILUMAB
     Indication: Idiopathic urticaria
     Route: 058
     Dates: start: 20220719, end: 20220719
  2. DUPIXENT [Suspect]
     Active Substance: DUPILUMAB
     Indication: Asthma
     Dosage: 200 MG, QOW
     Route: 058
     Dates: start: 20220802
  3. DUPIXENT [Suspect]
     Active Substance: DUPILUMAB
     Indication: Angioedema
  4. DUPIXENT [Suspect]
     Active Substance: DUPILUMAB
     Indication: Complement deficiency disease
  5. DUPIXENT [Suspect]
     Active Substance: DUPILUMAB
     Indication: Systemic lupus erythematosus
  6. DUPIXENT [Suspect]
     Active Substance: DUPILUMAB
     Indication: Asthma
     Dosage: 300 MG, QOW
     Route: 058
     Dates: start: 202207
  7. DUPIXENT [Suspect]
     Active Substance: DUPILUMAB
     Indication: Idiopathic urticaria
  8. DUPIXENT [Suspect]
     Active Substance: DUPILUMAB
     Indication: Dermatitis atopic
  9. DUPIXENT [Suspect]
     Active Substance: DUPILUMAB
     Indication: Complement deficiency disease
  10. TAKHZYRO [Concomitant]
     Active Substance: LANADELUMAB-FLYO
  11. EPINEPHRINE [Concomitant]
     Active Substance: EPINEPHRINE
  12. RASUVO [Concomitant]
     Active Substance: METHOTREXATE SODIUM
  13. SODIUM CHLORIDE [Concomitant]
     Active Substance: SODIUM CHLORIDE
  14. HEPARIN LOCK FLUSH [Concomitant]
     Active Substance: HEPARIN SODIUM
  15. SODIUM CHLORIDE [Concomitant]
     Active Substance: SODIUM CHLORIDE

REACTIONS (23)
  - Hereditary angioedema [Unknown]
  - Angioedema [Unknown]
  - Mouth swelling [Unknown]
  - Swollen tongue [Unknown]
  - Pharyngeal swelling [Unknown]
  - Systemic lupus erythematosus [Recovered/Resolved]
  - Angioedema [Recovered/Resolved]
  - Asthma [Unknown]
  - Hospitalisation [Unknown]
  - Peripheral swelling [Recovered/Resolved]
  - Swelling [Unknown]
  - Weight increased [Unknown]
  - Peripheral swelling [Not Recovered/Not Resolved]
  - Weight decreased [Unknown]
  - Abdominal distension [Recovered/Resolved]
  - Joint swelling [Recovered/Resolved]
  - Eye swelling [Recovered/Resolved]
  - Headache [Unknown]
  - Urticaria [Unknown]
  - Swelling face [Recovered/Resolved]
  - Swelling face [Recovered/Resolved]
  - Dermatitis atopic [Not Recovered/Not Resolved]
  - Product use in unapproved indication [Unknown]

NARRATIVE: CASE EVENT DATE: 20220719
